FAERS Safety Report 6230144-3 (Version None)
Quarter: 2009Q2

REPORT INFORMATION
  Report Type: 
  Country: None (occurrence: None)
  Receive Date: 20090615
  Receipt Date: 20090608
  Transmission Date: 20091009
  Serious: Yes (Other)
  Sender: FDA-Public Use
  Company Number: PHEH2009US05961

PATIENT
  Sex: Female
  Weight: 76.644 kg

DRUGS (5)
  1. RECLAST [Suspect]
     Indication: OSTEOPOROSIS POSTMENOPAUSAL
     Dosage: 5 MG, ONCE/SINGLE
     Dates: start: 20080826, end: 20080826
  2. SOMA [Concomitant]
  3. AVELOX [Concomitant]
  4. LEXAPRO [Concomitant]
  5. CALCIUM [Concomitant]

REACTIONS (1)
  - OSTEONECROSIS [None]
